FAERS Safety Report 6426545-0 (Version None)
Quarter: 2009Q4

REPORT INFORMATION
  Report Type: 
  Country: None (occurrence: None)
  Receive Date: 20091104
  Receipt Date: 20091025
  Transmission Date: 20100525
  Serious: Yes (Other)
  Sender: FDA-Public Use
  Company Number: GB-BAYER-200937081GPV

PATIENT
  Sex: Female

DRUGS (1)
  1. YASMIN [Suspect]
     Indication: CONTRACEPTION

REACTIONS (7)
  - ANGER [None]
  - DEPRESSED MOOD [None]
  - DISSOCIATION [None]
  - EMOTIONAL DISORDER [None]
  - NEGLECT OF PERSONAL APPEARANCE [None]
  - PARANOIA [None]
  - WEIGHT DECREASED [None]
